FAERS Safety Report 4973788-9 (Version None)
Quarter: 2006Q2

REPORT INFORMATION
  Report Type: 
  Country: None (occurrence: None)
  Receive Date: 20060414
  Receipt Date: 20051122
  Transmission Date: 20061013
  Serious: Yes (Hospitalization, Other)
  Sender: FDA-Public Use
  Company Number: US-MERCK-0511USA04012

PATIENT
  Age: 56 Year
  Sex: Female
  Weight: 77 kg

DRUGS (9)
  1. VIOXX [Suspect]
     Indication: ARTHROPATHY
     Route: 048
     Dates: start: 19990501, end: 20040930
  2. VIOXX [Suspect]
     Indication: OSTEOARTHRITIS
     Route: 048
     Dates: start: 19990501, end: 20040930
  3. PROCARDIA [Concomitant]
     Indication: HYPERTENSION
     Route: 065
  4. ALBUTEROL [Concomitant]
     Indication: ASTHMA
     Route: 065
  5. PLAVIX [Concomitant]
     Route: 065
     Dates: start: 19990101
  6. SYNTHROID [Concomitant]
     Indication: THYROID DISORDER
     Route: 065
     Dates: start: 20030101
  7. ANTIMICROBIAL (UNSPECIFIED) [Concomitant]
     Route: 065
  8. SYNVISC [Concomitant]
     Route: 065
  9. ASPIRIN [Concomitant]
     Indication: PROPHYLAXIS
     Route: 065
     Dates: start: 19990101

REACTIONS (7)
  - ARTHROPATHY [None]
  - CEREBROVASCULAR ACCIDENT [None]
  - CHOLELITHIASIS [None]
  - CHRONIC OBSTRUCTIVE PULMONARY DISEASE [None]
  - EXOSTOSIS [None]
  - GOITRE [None]
  - THROMBOSIS [None]
